FAERS Safety Report 6689838-8 (Version None)
Quarter: 2010Q2

REPORT INFORMATION
  Report Type: 
  Country: None (occurrence: None)
  Receive Date: 20100412
  Receipt Date: 20100223
  Transmission Date: 20101027
  Serious: No
  Sender: FDA-Public Use
  Company Number: 1000012002

PATIENT
  Age: 70 Year
  Sex: Male

DRUGS (1)
  1. BYSTOLIC [Suspect]

REACTIONS (1)
  - BLOOD PRESSURE DECREASED [None]
